FAERS Safety Report 10266861 (Version 1)
Quarter: 2014Q2

REPORT INFORMATION
  Report Type: Spontaneous
  Country: US (occurrence: US)
  Receive Date: 20140630
  Receipt Date: 20140630
  Transmission Date: 20141212
  Serious: No
  Sender: FDA-Public Use
  Company Number: US-BIOGENIDEC-2014BI061110

PATIENT
  Age: 33 Year
  Sex: Female

DRUGS (1)
  1. AVONEX [Suspect]
     Indication: MULTIPLE SCLEROSIS
     Route: 030
     Dates: start: 20130515

REACTIONS (4)
  - Contusion [Unknown]
  - Needle track marks [Not Recovered/Not Resolved]
  - Pain [Unknown]
  - Hypersensitivity [Not Recovered/Not Resolved]
